FAERS Safety Report 4925710-9 (Version None)
Quarter: 2006Q1

REPORT INFORMATION
  Report Type: 
  Country: None (occurrence: None)
  Receive Date: 20060228
  Receipt Date: 20050127
  Transmission Date: 20060701
  Serious: Yes (Life-Threatening, Hospitalization, Other)
  Sender: FDA-Public Use
  Company Number: US-GLAXOSMITHKLINE-A0542670A

PATIENT
  Age: 55 Year
  Sex: Female

DRUGS (4)
  1. LAMICTAL [Suspect]
     Route: 048
     Dates: start: 20040724, end: 20040908
  2. EFFEXOR XR [Concomitant]
     Indication: DEPRESSION
     Dosage: 225MG PER DAY
     Dates: start: 20040724
  3. WELLBUTRIN XL [Concomitant]
     Dosage: 300MG PER DAY
     Dates: start: 20040831
  4. SEROQUEL [Concomitant]
     Dosage: 25MG AT NIGHT
     Dates: start: 20040831

REACTIONS (11)
  - BLISTER [None]
  - DERMATITIS ALLERGIC [None]
  - ENANTHEMA [None]
  - GENITAL RASH [None]
  - MUCOSA VESICLE [None]
  - RASH [None]
  - RASH MACULAR [None]
  - RASH VESICULAR [None]
  - SKIN EXFOLIATION [None]
  - STEVENS-JOHNSON SYNDROME [None]
  - VAGINAL MUCOSAL BLISTERING [None]
